FAERS Safety Report 5714198-6 (Version None)
Quarter: 2008Q2

REPORT INFORMATION
  Report Type: 
  Country: None (occurrence: None)
  Receive Date: 20080423
  Receipt Date: 20071217
  Transmission Date: 20081010
  Serious: No
  Sender: FDA-Public Use
  Company Number: US-KINGPHARMUSA00001-K200701634

PATIENT

DRUGS (7)
  1. SKELAXIN [Suspect]
     Indication: PAIN
     Dosage: 800 MG, TID
     Route: 048
  2. TOPAMAX [Concomitant]
     Route: 048
  3. AMLODIPINE [Concomitant]
     Route: 048
  4. LIPITOR [Concomitant]
     Route: 048
  5. PAROXETINE HCL [Concomitant]
     Indication: PAIN
     Route: 048
  6. ACETAMINOPHEN AND TRAMADOL HCL [Concomitant]
     Indication: PAIN
     Route: 048
  7. PAIN PATCHES [Concomitant]
     Indication: PAIN
     Route: 062

REACTIONS (2)
  - HYPOAESTHESIA [None]
  - SENSATION OF HEAVINESS [None]
